FAERS Safety Report 4436855-4 (Version None)
Quarter: 2004Q3

REPORT INFORMATION
  Report Type: 
  Country: None (occurrence: None)
  Receive Date: 20040726
  Receipt Date: 20040322
  Transmission Date: 20050211
  Serious: No
  Sender: FDA-Public Use
  Company Number: USA040362759

PATIENT
  Age: 58 Year
  Sex: Female

DRUGS (7)
  1. FORTEO [Suspect]
     Indication: OSTEOPOROSIS
     Dates: start: 20040302
  2. PREVACID [Concomitant]
  3. ZOCOR [Concomitant]
  4. CALTRATE(CALCIUM CARBONATE) [Concomitant]
  5. NORVASC [Concomitant]
  6. VITAMIN E [Concomitant]
  7. ESTRACE [Concomitant]

REACTIONS (3)
  - GLOSSODYNIA [None]
  - PAIN IN EXTREMITY [None]
  - TONGUE DISCOLOURATION [None]
